FAERS Safety Report 8074947-1 (Version None)
Quarter: 2012Q1

REPORT INFORMATION
  Report Type: 
  Country: None (occurrence: None)
  Receive Date: 20120127
  Receipt Date: 20120123
  Transmission Date: 20120608
  Serious: Yes (Hospitalization, Other)
  Sender: FDA-Public Use
  Company Number: US-BIOGENIDEC-2011BI028968

PATIENT
  Age: 66 Year
  Sex: Female

DRUGS (1)
  1. TYSABRI [Suspect]
     Indication: MULTIPLE SCLEROSIS
     Route: 042
     Dates: start: 20071024, end: 20110613

REACTIONS (8)
  - NECROTISING FASCIITIS [None]
  - ANAEMIA [None]
  - CONFUSIONAL STATE [None]
  - URINARY TRACT INFECTION [None]
  - FEMUR FRACTURE [None]
  - IMPAIRED HEALING [None]
  - DECUBITUS ULCER [None]
  - EMOTIONAL DISORDER [None]
